FAERS Safety Report 14475613 (Version 6)
Quarter: 2018Q4

REPORT INFORMATION
  Report Type: Spontaneous
  Country: US (occurrence: US)
  Receive Date: 20180201
  Receipt Date: 20181010
  Transmission Date: 20190204
  Serious: Yes (Hospitalization, Other)
  Sender: FDA-Public Use
  Company Number: US-DSJP-DSU-2017-150329

PATIENT

DRUGS (6)
  1. BENICAR [Suspect]
     Active Substance: OLMESARTAN MEDOXOMIL
     Dosage: 20 MG HALF TABLET, QD
     Route: 048
     Dates: start: 20170825
  2. BUMEX [Suspect]
     Active Substance: BUMETANIDE
     Indication: PRODUCT USED FOR UNKNOWN INDICATION
     Dosage: UNK, BID
  3. BENICAR [Suspect]
     Active Substance: OLMESARTAN MEDOXOMIL
     Dosage: 10 MG, QD
     Dates: start: 20170314, end: 20171010
  4. BENICAR HCT [Suspect]
     Active Substance: HYDROCHLOROTHIAZIDE\OLMESARTAN MEDOXOMIL
     Indication: PRODUCT USED FOR UNKNOWN INDICATION
     Dosage: 40/12.5MG, QD
     Route: 048
     Dates: start: 20060101, end: 20161104
  5. BENICAR [Suspect]
     Active Substance: OLMESARTAN MEDOXOMIL
     Dosage: 20 MG, QD
     Route: 048
     Dates: start: 20161104, end: 20170314
  6. BENICAR [Suspect]
     Active Substance: OLMESARTAN MEDOXOMIL
     Indication: PRODUCT USED FOR UNKNOWN INDICATION
     Dosage: 40 MG, QD
     Route: 048
     Dates: start: 20060101, end: 20161231

REACTIONS (5)
  - Peptic ulcer [Recovering/Resolving]
  - Sprue-like enteropathy [Recovered/Resolved]
  - Acute kidney injury [Recovering/Resolving]
  - Product administration error [Unknown]
  - Hypotension [Recovering/Resolving]

NARRATIVE: CASE EVENT DATE: 20060101
